FAERS Safety Report 11240726 (Version 1)
Quarter: 2015Q3

REPORT INFORMATION
  Report Type: Spontaneous
  Country: GB (occurrence: GB)
  Receive Date: 20150706
  Receipt Date: 20150706
  Transmission Date: 20151125
  Serious: Yes (Other)
  Sender: FDA-Public Use
  Company Number: GB-ASTRAZENECA-2015SE64261

PATIENT
  Sex: Female

DRUGS (2)
  1. ZOLADEX [Suspect]
     Active Substance: GOSERELIN ACETATE
     Indication: UTERINE LEIOMYOMA
     Route: 058
     Dates: start: 20150324, end: 20150324
  2. ZOLADEX [Suspect]
     Active Substance: GOSERELIN ACETATE
     Indication: UTERINE LEIOMYOMA
     Route: 058
     Dates: start: 20150224, end: 20150224

REACTIONS (8)
  - Arthropathy [Not Recovered/Not Resolved]
  - Uterine disorder [Not Recovered/Not Resolved]
  - Drug dependence [Not Recovered/Not Resolved]
  - Skin disorder [Not Recovered/Not Resolved]
  - Dry eye [Not Recovered/Not Resolved]
  - Myopia [Not Recovered/Not Resolved]
  - Muscle spasms [Not Recovered/Not Resolved]
  - Vasculitis [Not Recovered/Not Resolved]
